FAERS Safety Report 6264917-8 (Version None)
Quarter: 2009Q3

REPORT INFORMATION
  Report Type: 
  Country: None (occurrence: None)
  Receive Date: 20090713
  Receipt Date: 20090701
  Transmission Date: 20100115
  Serious: Yes (Other)
  Sender: FDA-Public Use
  Company Number: US-BIOGENIDEC-2009BI020215

PATIENT
  Age: 68 Year
  Sex: Male

DRUGS (8)
  1. AVONEX [Suspect]
     Indication: MULTIPLE SCLEROSIS
     Route: 030
     Dates: start: 19980101, end: 20030101
  2. AVONEX [Suspect]
     Route: 030
     Dates: start: 20030101
  3. SIMVASTATIN [Concomitant]
     Route: 048
  4. FUROSEMIDE [Concomitant]
     Route: 048
  5. TOPROL-XL [Concomitant]
     Route: 048
  6. ASPIRIN [Concomitant]
     Route: 048
  7. DOXAZOSIN MESYLATE [Concomitant]
     Route: 048
  8. SUPPLEMENTS (NOS) [Concomitant]
     Indication: MULTIPLE SCLEROSIS
     Route: 048

REACTIONS (6)
  - CAROTID ARTERY OCCLUSION [None]
  - MEMORY IMPAIRMENT [None]
  - MENTAL IMPAIRMENT [None]
  - MOOD SWINGS [None]
  - RENAL IMPAIRMENT [None]
  - SPEECH DISORDER [None]
